FAERS Safety Report 24328626 (Version 1)
Quarter: 2024Q3

REPORT INFORMATION
  Report Type: Spontaneous
  Country: US (occurrence: None)
  Receive Date: 20240917
  Receipt Date: 20240917
  Transmission Date: 20241016
  Serious: Yes (Death)
  Sender: Public
  Company Number: None

PATIENT
  Age: 66 Year
  Sex: Male

DRUGS (1)
  1. LENALIDOMIDE [Suspect]
     Active Substance: LENALIDOMIDE
     Indication: Plasma cell myeloma
     Dosage: 5MG QD ORAL
     Route: 048
     Dates: start: 20240131, end: 20240604

REACTIONS (10)
  - Cough [None]
  - Dyspnoea [None]
  - Hypoaesthesia [None]
  - Hypoaesthesia [None]
  - Tremor [None]
  - Asthenia [None]
  - Chest pain [None]
  - Anaemia [None]
  - Fall [None]
  - Septic shock [None]

NARRATIVE: CASE EVENT DATE: 20240814
